FAERS Safety Report 13754563 (Version 2)
Quarter: 2018Q4

REPORT INFORMATION
  Report Type: Report from Study
  Country: DK (occurrence: DK)
  Receive Date: 20170714
  Receipt Date: 20181107
  Transmission Date: 20190204
  Serious: Yes (Other)
  Sender: FDA-Public Use
  Company Number: DK-ACCORD-053469

PATIENT
  Sex: Female

DRUGS (6)
  1. CISPLATIN. [Suspect]
     Active Substance: CISPLATIN
     Indication: GESTATIONAL TROPHOBLASTIC TUMOUR
     Dosage: DAY 1-5
     Route: 042
  2. BLEOMYCIN [Suspect]
     Active Substance: BLEOMYCIN SULFATE
     Indication: GESTATIONAL TROPHOBLASTIC TUMOUR
     Route: 042
  3. FOLINIC ACID [Concomitant]
     Active Substance: LEUCOVORIN
     Indication: DRUG TOXICITY PROPHYLAXIS
     Route: 048
  4. METHOTREXATE. [Suspect]
     Active Substance: METHOTREXATE
     Indication: GESTATIONAL TROPHOBLASTIC TUMOUR
     Route: 048
  5. BLEOMYCIN [Suspect]
     Active Substance: BLEOMYCIN SULFATE
     Indication: GESTATIONAL TROPHOBLASTIC TUMOUR
     Dosage: DAY 2, 9, AND 16
     Route: 042
  6. ETOPOSIDE. [Suspect]
     Active Substance: ETOPOSIDE
     Indication: GESTATIONAL TROPHOBLASTIC TUMOUR
     Dosage: DAY 1-5
     Route: 042

REACTIONS (4)
  - Off label use [Unknown]
  - Drug resistance [Unknown]
  - Anaemia [Unknown]
  - Respiratory symptom [Unknown]
